FAERS Safety Report 8956744 (Version 2)
Quarter: 2013Q1

REPORT INFORMATION
  Report Type: Report from Study
  Country: JP (occurrence: JP)
  Receive Date: 20121211
  Receipt Date: 20130201
  Transmission Date: 20140127
  Serious: No
  Sender: FDA-Public Use
  Company Number: JP-009507513-1212JPN002951

PATIENT
  Age: 79 Year
  Sex: Male

DRUGS (10)
  1. ZOLINZA CAPSULES 100MG [Suspect]
     Indication: ADULT T-CELL LYMPHOMA/LEUKAEMIA
     Dosage: 400 MG, QD
     Route: 048
     Dates: start: 20120216, end: 20120217
  2. NEUTROGIN [Concomitant]
     Indication: NEUTROPENIA
     Dosage: 50 MICROGRAM, QD
  3. DAIPHEN [Concomitant]
     Indication: PNEUMONIA
     Dosage: 4 DF, QD
     Route: 048
  4. EVIPROSTAT (HORSETAIL (+) MANGANESE SULFATE (+) PIPSISSEWA (+) POPULUS [Concomitant]
     Indication: BENIGN PROSTATIC HYPERPLASIA
     Dosage: 2 DF, TID
     Route: 048
  5. IBURONOL [Concomitant]
     Indication: CEREBRAL INFARCTION
     Dosage: 20 MG, TID
     Route: 048
  6. FUROSEMIDE [Concomitant]
     Indication: HYPERTENSION
     Dosage: 20 MG, QOD
     Route: 048
  7. PREDONINE [Concomitant]
     Indication: ADULT T-CELL LYMPHOMA/LEUKAEMIA
     Dosage: 5 MG, QOD
     Route: 048
  8. ITRIZOLE [Concomitant]
     Indication: SYSTEMIC MYCOSIS
     Dosage: 200 MG, QD
     Route: 048
  9. GASLON N [Concomitant]
     Indication: GASTRITIS
     Dosage: 2 MG, QD
     Route: 048
  10. ATEMINON [Concomitant]
     Indication: GASTRITIS
     Dosage: 150 MG, QD
     Route: 048

REACTIONS (4)
  - Aspartate aminotransferase increased [Recovered/Resolved]
  - Neutrophil count decreased [Recovered/Resolved]
  - Alanine aminotransferase increased [Recovering/Resolving]
  - White blood cell count decreased [Recovered/Resolved]
